FAERS Safety Report 14686082 (Version 1)
Quarter: 2018Q1

REPORT INFORMATION
  Report Type: Spontaneous
  Country: ES (occurrence: ES)
  Receive Date: 20180327
  Receipt Date: 20180327
  Transmission Date: 20180509
  Serious: Yes (Hospitalization)
  Sender: FDA-Public Use
  Company Number: ES-JNJFOC-20180331027

PATIENT

DRUGS (1)
  1. TRABECTEDIN [Suspect]
     Active Substance: TRABECTEDIN
     Indication: SARCOMA
     Route: 042

REACTIONS (3)
  - Vomiting [Unknown]
  - Altered state of consciousness [Unknown]
  - Aplasia [Unknown]
